FAERS Safety Report 18690280 (Version 1)
Quarter: 2021Q1

REPORT INFORMATION
  Report Type: Spontaneous
  Country: FR (occurrence: FR)
  Receive Date: 20210101
  Receipt Date: 20210101
  Transmission Date: 20210419
  Serious: Yes (Hospitalization)
  Sender: FDA-Public Use
  Company Number: FR-ROCHE-2742702

PATIENT
  Age: 61 Year
  Sex: Female

DRUGS (8)
  1. MODAMIDE [Concomitant]
     Active Substance: AMILORIDE HYDROCHLORIDE
     Route: 048
     Dates: end: 20200701
  2. KALEORID [Concomitant]
     Active Substance: POTASSIUM CHLORIDE
     Dosage: NON RENSEIGNEE
     Route: 048
     Dates: end: 20200701
  3. DELURSAN [Concomitant]
     Active Substance: URSODIOL
     Route: 048
  4. CELLCEPT [Suspect]
     Active Substance: MYCOPHENOLATE MOFETIL\MYCOPHENOLATE MOFETIL HYDROCHLORIDE
     Indication: SJOGREN^S SYNDROME
     Route: 048
     Dates: start: 202005, end: 20200708
  5. STELARA [Concomitant]
     Active Substance: USTEKINUMAB
     Dosage: NON RENSEIGNEE
     Route: 065
  6. PLAQUENIL [Concomitant]
     Active Substance: HYDROXYCHLOROQUINE SULFATE
     Route: 048
  7. MIKICORT [Concomitant]
     Active Substance: BUDESONIDE
     Dosage: NON RENSEIGNEE
     Route: 048
  8. IMUREL [Concomitant]
     Active Substance: AZATHIOPRINE SODIUM
     Dosage: NON RENSEIGNEE
     Route: 065

REACTIONS (2)
  - Diarrhoea [Recovered/Resolved]
  - Acute kidney injury [Recovering/Resolving]

NARRATIVE: CASE EVENT DATE: 202005
